FAERS Safety Report 11563677 (Version 5)
Quarter: 2016Q1

REPORT INFORMATION
  Report Type: Spontaneous
  Country: US (occurrence: US)
  Receive Date: 20150928
  Receipt Date: 20160310
  Transmission Date: 20160525
  Serious: No
  Sender: FDA-Public Use
  Company Number: US-PFIZER INC-2015322195

PATIENT
  Age: 5 Year
  Sex: Male
  Weight: 27 kg

DRUGS (4)
  1. QUILLIVANT XR [Suspect]
     Active Substance: METHYLPHENIDATE HYDROCHLORIDE
     Indication: ATTENTION DEFICIT/HYPERACTIVITY DISORDER
     Dosage: 7.5 ML, WEEKLY, 1.5ML, 5 TIMES A WEEK, MONDAY THROUGH FRIDAY
     Route: 048
     Dates: start: 2013, end: 2013
  2. QUILLIVANT XR [Suspect]
     Active Substance: METHYLPHENIDATE HYDROCHLORIDE
     Dosage: 1.5 MG, 1X/DAY
     Route: 048
     Dates: start: 2013
  3. QUILLIVANT XR [Suspect]
     Active Substance: METHYLPHENIDATE HYDROCHLORIDE
     Dosage: 1.5 ML, UNK
     Route: 048
  4. TENEX [Concomitant]
     Active Substance: GUANFACINE HYDROCHLORIDE
     Indication: AUTISM
     Dosage: 0.5 MG, DAILY
     Route: 048
     Dates: start: 20150922

REACTIONS (13)
  - Product quality issue [Not Recovered/Not Resolved]
  - Hypoacusis [Unknown]
  - Crying [Unknown]
  - Decreased appetite [Not Recovered/Not Resolved]
  - Eye oedema [Unknown]
  - Eye disorder [Unknown]
  - Mood swings [Unknown]
  - Terminal insomnia [Unknown]
  - Irritability [Recovered/Resolved]
  - Fatigue [Unknown]
  - Poor quality drug administered [Not Recovered/Not Resolved]
  - Insomnia [Recovered/Resolved]
  - Product use issue [Unknown]

NARRATIVE: CASE EVENT DATE: 2013
